FAERS Safety Report 8595809-7 (Version None)
Quarter: 2012Q3

REPORT INFORMATION
  Report Type: 
  Country: None (occurrence: None)
  Receive Date: 20120815
  Receipt Date: 20120731
  Transmission Date: 20120928
  Serious: Yes (Other)
  Sender: FDA-Public Use
  Company Number: JP-ROCHE-1077810

PATIENT
  Age: 17 Year
  Sex: Female

DRUGS (4)
  1. VALGANCICLOVIR [Suspect]
     Indication: CYTOMEGALOVIRUS CHORIORETINITIS
     Route: 048
     Dates: start: 20100409, end: 20110208
  2. MYCOPHENOLATE MOFETIL [Suspect]
     Indication: GRAFT VERSUS HOST DISEASE
     Route: 065
     Dates: start: 20090101
  3. GANCICLOVIR [Concomitant]
     Route: 041
     Dates: start: 20100101
  4. TACROLIMUS [Suspect]
     Indication: PRODUCT USED FOR UNKNOWN INDICATION
     Route: 065
     Dates: start: 20090101

REACTIONS (3)
  - GRANULOCYTE COUNT DECREASED [None]
  - RETINAL HAEMORRHAGE [None]
  - VITREOUS OPACITIES [None]
